FAERS Safety Report 5333342-6 (Version None)
Quarter: 2007Q2

REPORT INFORMATION
  Report Type: 
  Country: None (occurrence: None)
  Receive Date: 20070524
  Receipt Date: 20070516
  Transmission Date: 20071010
  Serious: Yes (Hospitalization)
  Sender: FDA-Public Use
  Company Number: FR-ELI_LILLY_AND_COMPANY-FR200705005073

PATIENT
  Age: 74 Year
  Sex: Female

DRUGS (5)
  1. FORTEO [Suspect]
     Indication: OSTEOPOROSIS
     Dosage: 20 UG, DAILY (1/D)
     Route: 058
     Dates: start: 20060708, end: 20070513
  2. FORTEO [Suspect]
     Dosage: 20 UG, DAILY (1/D)
     Route: 058
     Dates: start: 20070515
  3. COAPROVEL [Concomitant]
     Indication: HYPERTENSION
  4. CORDARONE [Concomitant]
     Indication: ARRHYTHMIA
  5. DIOSMIN [Concomitant]
     Indication: VENOUS INSUFFICIENCY

REACTIONS (2)
  - ABDOMINAL PAIN [None]
  - VOMITING [None]
